FAERS Safety Report 5529637-3 (Version None)
Quarter: 2007Q4

REPORT INFORMATION
  Report Type: 
  Country: None (occurrence: None)
  Receive Date: 20071129
  Receipt Date: 20071121
  Transmission Date: 20080405
  Serious: Yes (Other)
  Sender: FDA-Public Use
  Company Number: CA-ABBOTT-07P-028-0421459-00

PATIENT
  Sex: Female
  Weight: 65.1 kg

DRUGS (2)
  1. HUMIRA [Suspect]
     Indication: RHEUMATOID ARTHRITIS
     Route: 058
     Dates: start: 20061123, end: 20070801
  2. HUMIRA [Suspect]
     Dates: start: 20070820

REACTIONS (5)
  - DENTAL CARIES [None]
  - DIARRHOEA [None]
  - DYSPNOEA [None]
  - INFECTION [None]
  - RASH [None]
